FAERS Safety Report 23695686 (Version 1)
Quarter: 2024Q2

REPORT INFORMATION
  Report Type: Spontaneous
  Country: US (occurrence: US)
  Receive Date: 20240402
  Receipt Date: 20240402
  Transmission Date: 20240716
  Serious: No
  Sender: FDA-Public Use
  Company Number: US-ELI_LILLY_AND_COMPANY-US202404000148

PATIENT
  Age: 54 Year
  Sex: Female

DRUGS (5)
  1. ZEPBOUND [Suspect]
     Active Substance: TIRZEPATIDE
     Indication: Diabetes mellitus
     Dosage: 12.5 MG, WEEKLY (1/W)
     Route: 058
     Dates: start: 202403
  2. ZEPBOUND [Suspect]
     Active Substance: TIRZEPATIDE
     Indication: Diabetes mellitus
     Dosage: 12.5 MG, WEEKLY (1/W)
     Route: 058
     Dates: start: 202403
  3. ZEPBOUND [Suspect]
     Active Substance: TIRZEPATIDE
     Indication: Diabetes mellitus
     Dosage: 12.5 MG, WEEKLY (1/W)
     Route: 058
     Dates: start: 202403
  4. ZEPBOUND [Suspect]
     Active Substance: TIRZEPATIDE
     Indication: Diabetes mellitus
     Dosage: 12.5 MG, WEEKLY (1/W)
     Route: 058
     Dates: start: 202403
  5. METFORMIN [Concomitant]
     Active Substance: METFORMIN HYDROCHLORIDE
     Indication: Diabetes mellitus

REACTIONS (3)
  - Off label use [Unknown]
  - Eye swelling [Not Recovered/Not Resolved]
  - Pruritus [Not Recovered/Not Resolved]

NARRATIVE: CASE EVENT DATE: 20240301
